FAERS Safety Report 11807469 (Version 2)
Quarter: 2016Q1

REPORT INFORMATION
  Report Type: Spontaneous
  Country: JP (occurrence: JP)
  Receive Date: 20151207
  Receipt Date: 20160210
  Transmission Date: 20160525
  Serious: Yes (Hospitalization, Other)
  Sender: FDA-Public Use
  Company Number: JP-MALLINCKRODT-T201502125

PATIENT
  Age: 67 Year
  Sex: Male
  Weight: 71 kg

DRUGS (10)
  1. OXINORM [Concomitant]
     Active Substance: OXYCODONE HYDROCHLORIDE
     Dosage: 10MG, P.R.N.
     Route: 048
     Dates: start: 20150225, end: 20150225
  2. NOVAMIN [Concomitant]
     Active Substance: PROCHLORPERAZINE MALEATE
     Dosage: 10MG
     Route: 048
     Dates: end: 20150427
  3. PURSENNID [Concomitant]
     Active Substance: SENNOSIDES A AND B
     Dosage: 24MG
     Route: 048
  4. OXINORM [Concomitant]
     Active Substance: OXYCODONE HYDROCHLORIDE
     Dosage: 10MG, P.R.N.
     Route: 048
     Dates: start: 20150302
  5. MAGMITT [Concomitant]
     Active Substance: MAGNESIUM OXIDE
     Dosage: 1500MG
     Route: 048
  6. LOXOPROFEN [Concomitant]
     Active Substance: LOXOPROFEN
     Dosage: 180MG
     Route: 048
  7. METHADONE [Suspect]
     Active Substance: METHADONE HYDROCHLORIDE
     Indication: CANCER PAIN
     Dosage: 5MG, (15MG DAILY DOSE)
     Route: 048
     Dates: start: 20150226, end: 20150409
  8. LANSOPRAZOLE. [Concomitant]
     Active Substance: LANSOPRAZOLE
     Dosage: 30MG
     Route: 048
  9. FENTANYL CITRATE. [Concomitant]
     Active Substance: FENTANYL CITRATE
     Dosage: 0.02MG, P.R.N.
     Route: 051
     Dates: start: 20150226, end: 20150304
  10. LYRICA [Concomitant]
     Active Substance: PREGABALIN
     Dosage: 25MG
     Route: 048

REACTIONS (4)
  - Delirium [Not Recovered/Not Resolved]
  - Urinary tract infection [Recovered/Resolved]
  - Chest pain [Recovering/Resolving]
  - Dysphagia [Not Recovered/Not Resolved]

NARRATIVE: CASE EVENT DATE: 20150302
